FAERS Safety Report 8875445 (Version 2)
Quarter: 2012Q4

REPORT INFORMATION
  Report Type: 
  Country: FR (occurrence: FR)
  Receive Date: 20121023
  Receipt Date: 20121121
  Transmission Date: 20130627
  Serious: No
  Sender: FDA-Public Use
  Company Number: FR-JNJFOC-20121011998

PATIENT
  Age: 85 Year
  Sex: Female
  Weight: 50 kg

DRUGS (1)
  1. DUROGESIC [Suspect]
     Indication: PAIN
     Dosage: 25ug patch and half a 25ug patch
     Route: 062
     Dates: start: 20121015

REACTIONS (2)
  - Drug prescribing error [Unknown]
  - Off label use [Unknown]
